FAERS Safety Report 19674920 (Version 1)
Quarter: 2021Q3

REPORT INFORMATION
  Report Type: Spontaneous
  Country: LB (occurrence: LB)
  Receive Date: 20210809
  Receipt Date: 20210809
  Transmission Date: 20211014
  Serious: Yes (Death)
  Sender: FDA-Public Use
  Company Number: LB-NOVOPROD-834665

PATIENT
  Sex: Female

DRUGS (2)
  1. NOVOSEVEN [Suspect]
     Active Substance: COAGULATION FACTOR VIIA RECOMBINANT HUMAN
     Indication: INTESTINAL VARICES HAEMORRHAGE
  2. NOVOSEVEN [Suspect]
     Active Substance: COAGULATION FACTOR VIIA RECOMBINANT HUMAN
     Indication: GASTRIC VARICES HAEMORRHAGE
     Dosage: 7MG
     Route: 065

REACTIONS (3)
  - Gastric varices haemorrhage [Fatal]
  - Intestinal varices haemorrhage [Fatal]
  - Therapy non-responder [Fatal]
